FAERS Safety Report 5225421-9 (Version None)
Quarter: 2007Q1

REPORT INFORMATION
  Report Type: 
  Country: None (occurrence: None)
  Receive Date: 20061201
  Receipt Date: 20060821
  Transmission Date: 20070707
  Serious: No
  Sender: FDA-Public Use
  Company Number: US200608004560

PATIENT
  Sex: Female

DRUGS (11)
  1. CYMBALTA [Suspect]
     Indication: FIBROMYALGIA
     Dosage: SEE IMAGE
     Dates: end: 20060801
  2. CYMBALTA [Suspect]
     Indication: FIBROMYALGIA
     Dosage: SEE IMAGE
     Dates: start: 20060101
  3. ALTACE [Concomitant]
  4. WELLBUTRIN SR [Concomitant]
  5. XANAX XR [Concomitant]
  6. LASIX [Concomitant]
  7. AMBIEN [Concomitant]
  8. ZETIA [Concomitant]
  9. POTASSIUM (POTASSIUM) [Concomitant]
  10. ZELNORM /USA/(TEGASEROD) [Concomitant]
  11. INSULIN (INSULIN) [Concomitant]

REACTIONS (6)
  - BLOOD GLUCOSE FLUCTUATION [None]
  - CONSTIPATION [None]
  - MYALGIA [None]
  - PARAESTHESIA [None]
  - STOMATITIS [None]
  - TREMOR [None]
